FAERS Safety Report 6026626-X (Version None)
Quarter: 2008Q4

REPORT INFORMATION
  Report Type: 
  Country: None (occurrence: None)
  Receive Date: 20081231
  Receipt Date: 20081222
  Transmission Date: 20090506
  Serious: Yes (Other)
  Sender: FDA-Public Use
  Company Number: CHPA2008US23011

PATIENT
  Age: 66 Year
  Sex: Male

DRUGS (3)
  1. MAALOX ANTACID/ANTIGAS RS LIQ COOL MINT (NCH)(MAGNESIUM HYDROXIDE, ALU [Suspect]
     Indication: ANTACID THERAPY
     Dosage: 6 TSP, ONCE/SINGLE, ORAL
     Route: 048
     Dates: start: 20081221, end: 20081221
  2. OMEPRAZOLE [Suspect]
     Indication: ANTACID THERAPY
     Dosage: ORAL
     Route: 048
     Dates: start: 20081221
  3. RANITIDINE [Suspect]
     Indication: ANTACID THERAPY
     Dosage: ORAL
     Route: 048
     Dates: start: 20081221

REACTIONS (4)
  - DIARRHOEA [None]
  - HAEMATOCHEZIA [None]
  - VOMITING [None]
  - WRONG TECHNIQUE IN DRUG USAGE PROCESS [None]
